FAERS Safety Report 4428446-6 (Version None)
Quarter: 2004Q3

REPORT INFORMATION
  Report Type: 
  Country: None (occurrence: None)
  Receive Date: 20040813
  Receipt Date: 20040730
  Transmission Date: 20050211
  Serious: Yes (Other)
  Sender: FDA-Public Use
  Company Number: DEU-2004-0000926

PATIENT
  Age: 77 Year
  Sex: Female

DRUGS (1)
  1. OXYGESIC(OXYCODONE HYDROCHLORIDE) CR TABLET [Suspect]
     Indication: PAIN
     Dosage: 40 MG, BID, ORAL
     Route: 048

REACTIONS (2)
  - CONFUSIONAL STATE [None]
  - DELUSION [None]
